FAERS Safety Report 7721216-2 (Version None)
Quarter: 2011Q3

REPORT INFORMATION
  Report Type: 
  Country: None (occurrence: None)
  Receive Date: 20110831
  Receipt Date: 20110105
  Transmission Date: 20111222
  Serious: No
  Sender: FDA-Public Use
  Company Number: US-BAYER-2011-001965

PATIENT
  Sex: Female

DRUGS (1)
  1. MIRENA [Suspect]
     Dosage: 20 ?G/D, CONT
     Route: 015

REACTIONS (4)
  - ABDOMINAL PAIN LOWER [None]
  - VAGINAL ODOUR [None]
  - MEDICAL DEVICE COMPLICATION [None]
  - URINARY TRACT INFECTION [None]
